FAERS Safety Report 6241551-7 (Version None)
Quarter: 2009Q2

REPORT INFORMATION
  Report Type: 
  Country: None (occurrence: None)
  Receive Date: 20090623
  Receipt Date: 20030704
  Transmission Date: 20091009
  Serious: Yes (Death, Life-Threatening, Hospitalization)
  Sender: FDA-Public Use
  Company Number: BR-ROCHE-341719

PATIENT
  Sex: Male
  Weight: 88 kg

DRUGS (46)
  1. MYCOPHENOLATE MOFETIL [Suspect]
     Route: 048
     Dates: start: 20030509
  2. MYCOPHENOLATE MOFETIL [Suspect]
     Route: 048
     Dates: start: 20030509
  3. MYCOPHENOLATE MOFETIL [Suspect]
     Route: 048
     Dates: start: 20030516, end: 20030520
  4. MYCOPHENOLATE MOFETIL [Suspect]
     Route: 048
     Dates: start: 20030521, end: 20030629
  5. MYCOPHENOLATE MOFETIL [Suspect]
     Route: 048
     Dates: start: 20030630, end: 20030630
  6. MYCOPHENOLATE MOFETIL [Suspect]
     Route: 048
     Dates: start: 20030701, end: 20030701
  7. MYCOPHENOLATE MOFETIL [Suspect]
     Route: 048
     Dates: start: 20030702, end: 20030716
  8. CYCLOSPORINE [Suspect]
     Route: 048
     Dates: start: 20030509
  9. CYCLOSPORINE [Suspect]
     Route: 048
     Dates: start: 20030509
  10. CYCLOSPORINE [Suspect]
     Route: 048
     Dates: start: 20030511
  11. CYCLOSPORINE [Suspect]
     Route: 048
     Dates: start: 20030511
  12. CYCLOSPORINE [Suspect]
     Route: 048
     Dates: start: 20030513
  13. CYCLOSPORINE [Suspect]
     Route: 048
     Dates: start: 20030513
  14. CYCLOSPORINE [Suspect]
     Route: 048
     Dates: start: 20030613, end: 20030716
  15. PREDNISONE [Suspect]
     Dosage: FORM DRAG
     Route: 048
     Dates: start: 20030512, end: 20030527
  16. PREDNISONE [Suspect]
     Route: 048
     Dates: start: 20030528, end: 20030610
  17. PREDNISONE [Suspect]
     Route: 048
     Dates: start: 20030611
  18. PREDNISONE [Suspect]
     Route: 048
     Dates: start: 20030716
  19. PREDNISONE [Suspect]
     Route: 048
     Dates: start: 20030725, end: 20030728
  20. METHYLPREDNISOLONE [Suspect]
     Route: 042
     Dates: start: 20030509, end: 20030512
  21. METHYLPREDNISOLONE [Suspect]
     Route: 042
     Dates: start: 20030515, end: 20030521
  22. METHYLPREDNISOLONE [Suspect]
     Route: 042
     Dates: start: 20030613, end: 20030619
  23. AMPICILINA [Concomitant]
     Route: 042
     Dates: start: 20030707, end: 20030716
  24. CIPROFLOXACIN [Concomitant]
     Route: 048
     Dates: start: 20030625, end: 20030630
  25. CEFEPIME [Concomitant]
     Route: 042
     Dates: start: 20030630, end: 20030716
  26. FUROSEMIDE [Concomitant]
     Route: 048
     Dates: start: 20030513, end: 20030523
  27. FUROSEMIDE [Concomitant]
     Dosage: FORM: DRAG
     Route: 048
     Dates: start: 20030530, end: 20030701
  28. FUROSEMIDE [Concomitant]
     Route: 042
     Dates: start: 20030510
  29. FUROSEMIDE [Concomitant]
     Route: 042
     Dates: start: 20030510
  30. GANCICLOVIR [Concomitant]
     Dosage: DRUG NAME REPORTED AS GANCYCOVIR
     Route: 042
     Dates: start: 20030603, end: 20030616
  31. HYDRALAZINE HCL [Concomitant]
     Dosage: FORM: DRAG
     Route: 048
     Dates: start: 20030512, end: 20030706
  32. HYDRALAZINE HCL [Concomitant]
     Route: 048
     Dates: start: 20030512, end: 20030706
  33. IMIPENEM [Concomitant]
     Route: 042
     Dates: start: 20030723, end: 20030728
  34. METRONIDAZOLE [Concomitant]
     Route: 042
     Dates: start: 20030707, end: 20030716
  35. OMEPRAZOL [Concomitant]
     Dosage: FORM: DRAG
     Route: 048
     Dates: start: 20030510
  36. OMEPRAZOL [Concomitant]
     Route: 048
     Dates: start: 20030510
  37. OMEPRAZOL [Concomitant]
     Route: 048
     Dates: start: 20030523
  38. OMEPRAZOL [Concomitant]
     Route: 048
     Dates: start: 20030530
  39. PROPRANOLOL HYDROCHLORIDE [Concomitant]
     Dosage: FORM: DRAG
     Route: 048
     Dates: start: 20030512
  40. PROPRANOLOL HYDROCHLORIDE [Concomitant]
     Route: 048
     Dates: start: 20030512
  41. PROPRANOLOL HYDROCHLORIDE [Concomitant]
     Route: 048
     Dates: start: 20030516
  42. PROPRANOLOL HYDROCHLORIDE [Concomitant]
     Route: 048
     Dates: start: 20030518
  43. PROPRANOLOL HYDROCHLORIDE [Concomitant]
     Route: 048
     Dates: start: 20030520
  44. RANITIDINE [Concomitant]
     Route: 042
     Dates: start: 20030509, end: 20030512
  45. SULFAMETHOXAZOLE AND TRIMETHOPRIM [Concomitant]
     Dosage: FORM: DRAG
     Route: 048
     Dates: start: 20030514
  46. COTRIM [Concomitant]
     Route: 048
     Dates: start: 20030514

REACTIONS (7)
  - ANAPHYLACTIC REACTION [None]
  - CHOLECYSTITIS [None]
  - CYTOMEGALOVIRUS INFECTION [None]
  - HERNIA [None]
  - PANCYTOPENIA [None]
  - RESPIRATORY FAILURE [None]
  - SEPSIS [None]
